FAERS Safety Report 5251939-9 (Version None)
Quarter: 2007Q1

REPORT INFORMATION
  Report Type: 
  Country: None (occurrence: None)
  Receive Date: 20070228
  Receipt Date: 20070216
  Transmission Date: 20070707
  Serious: Yes (Hospitalization)
  Sender: FDA-Public Use
  Company Number: SG-MERCK-0702SGP00004

PATIENT

DRUGS (1)
  1. FOSAMAX [Suspect]
     Route: 048
     Dates: start: 20021201, end: 20070101

REACTIONS (3)
  - FALL [None]
  - FEMUR FRACTURE [None]
  - ROAD TRAFFIC ACCIDENT [None]
